FAERS Safety Report 22010623 (Version 1)
Quarter: 2023Q1

REPORT INFORMATION
  Report Type: Spontaneous
  Country: ES (occurrence: ES)
  Receive Date: 20230220
  Receipt Date: 20230220
  Transmission Date: 20230418
  Serious: Yes (Life-Threatening, Hospitalization)
  Sender: FDA-Public Use
  Company Number: None

PATIENT
  Age: 30 Year
  Sex: Male

DRUGS (5)
  1. ETOPOSIDE [Interacting]
     Active Substance: ETOPOSIDE
     Indication: Primary mediastinal large B-cell lymphoma stage IV
     Dates: start: 20220907
  2. CYCLOPHOSPHAMIDE [Interacting]
     Active Substance: CYCLOPHOSPHAMIDE
     Indication: Primary mediastinal large B-cell lymphoma stage IV
     Dates: start: 20220907
  3. DOXORUBICIN [Interacting]
     Active Substance: DOXORUBICIN
     Indication: Primary mediastinal large B-cell lymphoma stage IV
     Dates: start: 20220907
  4. VINCRISTINE [Interacting]
     Active Substance: VINCRISTINE
     Indication: Primary mediastinal large B-cell lymphoma stage IV
     Dates: start: 20220907
  5. MABTHERA [Concomitant]
     Active Substance: RITUXIMAB
     Indication: Primary mediastinal large B-cell lymphoma stage IV
     Dosage: STRENGTH: 100 MG, 2 VIALS OF 10 ML
     Dates: start: 20220907

REACTIONS (2)
  - Pancytopenia [Recovered/Resolved]
  - Drug interaction [Unknown]

NARRATIVE: CASE EVENT DATE: 20220920
